FAERS Safety Report 5813539-9 (Version None)
Quarter: 2008Q3

REPORT INFORMATION
  Report Type: 
  Country: None (occurrence: None)
  Receive Date: 20080717
  Receipt Date: 20080708
  Transmission Date: 20090109
  Serious: Yes (Death)
  Sender: FDA-Public Use
  Company Number: CA-MERCK-0805CAN00013

PATIENT
  Age: 46 Year
  Sex: Male
  Weight: 62 kg

DRUGS (7)
  1. ISENTRESS [Suspect]
     Indication: HIV INFECTION
     Route: 048
     Dates: end: 20080101
  2. ENFUVIRTIDE [Concomitant]
     Indication: HIV INFECTION
     Route: 065
  3. MARAVIROC [Concomitant]
     Indication: HIV INFECTION
     Route: 065
  4. DARUNAVIR [Concomitant]
     Indication: HIV INFECTION
     Route: 065
  5. RITONAVIR [Concomitant]
     Indication: HIV INFECTION
     Route: 065
  6. TENOFOVIR [Concomitant]
     Indication: HIV INFECTION
     Route: 065
  7. TENOFOVIR [Concomitant]
     Indication: HEPATITIS B
     Route: 065

REACTIONS (2)
  - HEPATIC FAILURE [None]
  - HEPATITIS B [None]
